FAERS Safety Report 10442607 (Version 3)
Quarter: 2014Q4

REPORT INFORMATION
  Report Type: Spontaneous
  Country: CA (occurrence: CA)
  Receive Date: 20140909
  Receipt Date: 20141103
  Transmission Date: 20150528
  Serious: Yes (Other)
  Sender: FDA-Public Use
  Company Number: ALCN2014CA005030

PATIENT

DRUGS (1)
  1. FLUORESCITE [Suspect]
     Active Substance: D+C YELLOW NO. 8
     Dosage: 1 UNK, UNK
     Route: 065

REACTIONS (2)
  - Loss of consciousness [Recovered/Resolved]
  - Swelling face [Recovered/Resolved]
